FAERS Safety Report 4391619-5 (Version None)
Quarter: 2004Q3

REPORT INFORMATION
  Report Type: 
  Country: None (occurrence: None)
  Receive Date: 20040702
  Receipt Date: 20040423
  Transmission Date: 20050211
  Serious: Yes (Other)
  Sender: FDA-Public Use
  Company Number: 2004UW08330

PATIENT
  Age: 42 Year
  Sex: Female
  Weight: 56.6996 kg

DRUGS (4)
  1. CRESTOR [Suspect]
     Indication: PROPHYLAXIS
     Dates: start: 20031201
  2. CRESTOR [Suspect]
     Indication: PROPHYLAXIS
     Dates: start: 20040101
  3. ASPIRIN [Concomitant]
  4. INSULIN [Concomitant]

REACTIONS (2)
  - BREAST PAIN [None]
  - HYPERTROPHY BREAST [None]
